FAERS Safety Report 7802351-7 (Version None)
Quarter: 2011Q4

REPORT INFORMATION
  Report Type: 
  Country: None (occurrence: None)
  Receive Date: 20111007
  Receipt Date: 20111003
  Transmission Date: 20120403
  Serious: Yes (Other)
  Sender: FDA-Public Use
  Company Number: US-SANOFI-AVENTIS-2011SA064838

PATIENT
  Age: 57 Year
  Sex: Male

DRUGS (2)
  1. MULTAQ [Suspect]
     Indication: ATRIAL FIBRILLATION
     Route: 048
     Dates: start: 20110901
  2. ASPIRIN [Concomitant]
     Route: 048

REACTIONS (1)
  - ATRIAL FIBRILLATION [None]
